FAERS Safety Report 17879655 (Version 1)
Quarter: 2020Q2

REPORT INFORMATION
  Report Type: Spontaneous
  Country: US (occurrence: US)
  Receive Date: 20200610
  Receipt Date: 20200610
  Transmission Date: 20200714
  Serious: No
  Sender: FDA-Public Use
  Company Number: US-MYLANLABS-2020M1052948

PATIENT
  Age: 67 Year
  Sex: Female
  Weight: 90 kg

DRUGS (1)
  1. LIDOCAINE PATCH [Suspect]
     Active Substance: LIDOCAINE
     Indication: SCIATIC NERVE NEUROPATHY
     Dosage: 5 PERCENT
     Route: 003
     Dates: start: 20200521, end: 202005

REACTIONS (4)
  - Off label use [Recovered/Resolved]
  - Wrong technique in product usage process [Recovered/Resolved]
  - Product quality issue [Recovered/Resolved]
  - Product adhesion issue [Recovered/Resolved]

NARRATIVE: CASE EVENT DATE: 202005
